FAERS Safety Report 6219780-8 (Version None)
Quarter: 2009Q2

REPORT INFORMATION
  Report Type: 
  Country: None (occurrence: None)
  Receive Date: 20090609
  Receipt Date: 20090603
  Transmission Date: 20091009
  Serious: Yes (Other)
  Sender: FDA-Public Use
  Company Number: B0569593A

PATIENT
  Sex: Male
  Weight: 65 kg

DRUGS (5)
  1. RELENZA [Suspect]
     Indication: INFLUENZA
     Dosage: 10MG TWICE PER DAY
     Route: 055
     Dates: start: 20090128, end: 20090201
  2. ACETAMINOPHEN [Suspect]
     Dosage: 200MG PER DAY
     Route: 048
     Dates: start: 20090128, end: 20090128
  3. CHINESE MEDICINE [Suspect]
     Indication: INFLUENZA
     Dosage: 7.5MG PER DAY
     Route: 048
     Dates: start: 20090128, end: 20090201
  4. OVER COUNTER COLD REMEDY [Concomitant]
     Dates: start: 20090128
  5. ANTITUSSIVES [Concomitant]
     Indication: COUGH
     Dates: start: 20090128

REACTIONS (2)
  - ABNORMAL BEHAVIOUR [None]
  - DELIRIUM [None]
